FAERS Safety Report 4634677-2 (Version None)
Quarter: 2005Q2

REPORT INFORMATION
  Report Type: 
  Country: None (occurrence: None)
  Receive Date: 20050413
  Receipt Date: 20050413
  Transmission Date: 20051028
  Serious: Yes (Death)
  Sender: FDA-Public Use
  Company Number: None

PATIENT
  Age: 72 Year
  Sex: Male
  Weight: 79.3795 kg

DRUGS (8)
  1. LEVAQUIN [Suspect]
     Indication: PROSTATITIS
     Dosage: 500 MG , I DAILY
  2. ACTOS [Concomitant]
  3. GLYNASE [Concomitant]
  4. PLENDIL [Concomitant]
  5. CAPTOPRIL [Concomitant]
  6. FLOMAX [Concomitant]
  7. REGLAN [Concomitant]
  8. FLONASE [Concomitant]

REACTIONS (8)
  - ABDOMINAL PAIN [None]
  - ASTHENIA [None]
  - CATARACT [None]
  - DEPRESSION [None]
  - FATIGUE [None]
  - INSOMNIA [None]
  - PAIN [None]
  - SUICIDAL IDEATION [None]
